FAERS Safety Report 4777857-8 (Version None)
Quarter: 2005Q3

REPORT INFORMATION
  Report Type: 
  Country: None (occurrence: None)
  Receive Date: 20050926
  Receipt Date: 20050907
  Transmission Date: 20060218
  Serious: Yes (Hospitalization)
  Sender: FDA-Public Use
  Company Number: US-BOEHRINGER INGELHEIM PHARMACEUTICALS, INC.-2005-BP-15679BP

PATIENT
  Sex: Male
  Weight: 55.3 kg

DRUGS (1)
  1. TIPRANAVIR / RITONAVIR CAPSULES [Suspect]
     Indication: HIV INFECTION
     Dosage: TPV/R 1000/400
     Route: 048
     Dates: start: 20041102

REACTIONS (8)
  - BACK PAIN [None]
  - BIOPSY COLON ABNORMAL [None]
  - COLITIS [None]
  - DYSPNOEA [None]
  - PAIN [None]
  - PRODUCTIVE COUGH [None]
  - PYREXIA [None]
  - RENAL CYST [None]
